FAERS Safety Report 4603750-7 (Version None)
Quarter: 2005Q1

REPORT INFORMATION
  Report Type: 
  Country: None (occurrence: None)
  Receive Date: 20050308
  Receipt Date: 20050308
  Transmission Date: 20050727
  Serious: Yes (Life-Threatening)
  Sender: FDA-Public Use
  Company Number: None

PATIENT
  Age: 38 Year
  Sex: Female
  Weight: 53.5244 kg

DRUGS (2)
  1. XANAX [Suspect]
     Indication: DEATH OF PARENT
     Dosage: 1 MG   AT NIGHTTIME   ORAL
     Route: 048
     Dates: start: 20020730, end: 20041216
  2. XANAX [Suspect]
     Indication: INSOMNIA
     Dosage: 1 MG   AT NIGHTTIME   ORAL
     Route: 048
     Dates: start: 20020730, end: 20041216

REACTIONS (24)
  - ARTHRALGIA [None]
  - BACK PAIN [None]
  - DEPERSONALISATION [None]
  - DEPRESSION [None]
  - DEREALISATION [None]
  - DRUG DEPENDENCE [None]
  - DRUG WITHDRAWAL SYNDROME [None]
  - DYSKINESIA [None]
  - EAR PAIN [None]
  - EATING DISORDER [None]
  - FEELING ABNORMAL [None]
  - IMPAIRED SELF-CARE [None]
  - IMPAIRED WORK ABILITY [None]
  - INFLUENZA LIKE ILLNESS [None]
  - LOSS OF CONSCIOUSNESS [None]
  - MEMORY IMPAIRMENT [None]
  - MYALGIA [None]
  - PAIN IN JAW [None]
  - PANIC ATTACK [None]
  - PHOTOPHOBIA [None]
  - SINUS CONGESTION [None]
  - SOCIAL AVOIDANT BEHAVIOUR [None]
  - STOMACH DISCOMFORT [None]
  - SUICIDAL IDEATION [None]
